FAERS Safety Report 9464136 (Version 1)
Quarter: 2013Q3

REPORT INFORMATION
  Report Type: Spontaneous
  Country: US (occurrence: US)
  Receive Date: 20130819
  Receipt Date: 20130819
  Transmission Date: 20140515
  Serious: Yes (Hospitalization)
  Sender: FDA-Public Use
  Company Number: US-MYLANLABS-2013S1017575

PATIENT
  Age: 43 Year
  Sex: Female

DRUGS (8)
  1. MORPHINE [Suspect]
     Indication: PAIN
     Route: 048
  2. MORPHINE [Suspect]
     Indication: PAIN
     Dosage: 60MG EVERY 2HOURS AS NEEDED
     Route: 060
  3. GABAPENTIN [Concomitant]
     Route: 048
  4. IBUPROFEN [Concomitant]
     Route: 048
  5. OXYCODONE [Concomitant]
     Indication: PAIN
     Route: 048
  6. NORTRIPTYLINE [Concomitant]
     Indication: NEURALGIA
     Dosage: 50MG AT BEDTIME
     Route: 048
  7. GABAPENTIN [Concomitant]
     Route: 048
  8. CARBAMAZEPINE [Concomitant]
     Indication: NEURALGIA
     Route: 048

REACTIONS (2)
  - Allodynia [Recovered/Resolved]
  - Hyperaesthesia [Recovered/Resolved]
